FAERS Safety Report 5502818-0 (Version None)
Quarter: 2007Q4

REPORT INFORMATION
  Report Type: 
  Country: None (occurrence: None)
  Receive Date: 20071031
  Receipt Date: 20071022
  Transmission Date: 20080405
  Serious: Yes (Hospitalization)
  Sender: FDA-Public Use
  Company Number: ES-JNJFOC-20071006014

PATIENT
  Age: 4 Decade
  Sex: Female

DRUGS (2)
  1. REMICADE [Suspect]
     Indication: CROHN'S DISEASE
     Dosage: 23 DOSES, THIS IS THE LAST DOSE
     Route: 042
  2. IMUREL [Concomitant]

REACTIONS (4)
  - ABDOMINAL PAIN [None]
  - COLOSTOMY [None]
  - LARGE INTESTINE PERFORATION [None]
  - SIGMOIDECTOMY [None]
